FAERS Safety Report 21120215 (Version 1)
Quarter: 2022Q3

REPORT INFORMATION
  Report Type: Spontaneous
  Country: US (occurrence: None)
  Receive Date: 20220722
  Receipt Date: 20220722
  Transmission Date: 20221026
  Serious: Yes (Hospitalization, Other)
  Sender: FDA-Public Use
  Company Number: US-MLMSERVICE-20220705-3656216-1

PATIENT
  Age: 43 Year
  Sex: Male

DRUGS (1)
  1. CALCIUM CARBONATE [Suspect]
     Active Substance: CALCIUM CARBONATE
     Indication: Product used for unknown indication
     Dosage: OVER-THE-COUNTER BOTTLE
     Route: 065

REACTIONS (3)
  - Milk-alkali syndrome [Unknown]
  - Hypokalaemia [Unknown]
  - Product use issue [Unknown]
